FAERS Safety Report 5711991-0 (Version None)
Quarter: 2008Q2

REPORT INFORMATION
  Report Type: 
  Country: None (occurrence: None)
  Receive Date: 20080422
  Receipt Date: 20080411
  Transmission Date: 20081010
  Serious: Yes (Hospitalization)
  Sender: FDA-Public Use
  Company Number: FR-ROCHE-558631

PATIENT
  Sex: Female

DRUGS (5)
  1. VALIUM [Suspect]
     Indication: SUICIDE ATTEMPT
     Route: 048
     Dates: start: 20060508, end: 20060508
  2. APRANAX [Suspect]
     Indication: SUICIDE ATTEMPT
     Route: 048
     Dates: start: 20060508, end: 20060508
  3. ETHANOL [Suspect]
     Indication: SUICIDE ATTEMPT
     Route: 048
     Dates: start: 20060508, end: 20060508
  4. IBUPROFEN [Suspect]
     Indication: SUICIDE ATTEMPT
     Dosage: 100 MG 10 TABLETS.
     Route: 048
     Dates: start: 20060508, end: 20060508
  5. PARACETAMOL [Suspect]
     Indication: SUICIDE ATTEMPT
     Dosage: 500 MG 10 TABLETS.
     Route: 048
     Dates: start: 20060508, end: 20060508

REACTIONS (1)
  - CYTOLYTIC HEPATITIS [None]
